FAERS Safety Report 7445523-6 (Version None)
Quarter: 2011Q2

REPORT INFORMATION
  Report Type: 
  Country: None (occurrence: None)
  Receive Date: 20110429
  Receipt Date: 20110427
  Transmission Date: 20111010
  Serious: Yes (Other)
  Sender: FDA-Public Use
  Company Number: GB-ABBOTT-11P-167-0720665-00

PATIENT
  Sex: Female

DRUGS (1)
  1. KLARICID [Suspect]
     Indication: LOWER RESPIRATORY TRACT INFECTION

REACTIONS (2)
  - ILL-DEFINED DISORDER [None]
  - BLOOD GLUCOSE ABNORMAL [None]
